FAERS Safety Report 5933456-3 (Version None)
Quarter: 2008Q4

REPORT INFORMATION
  Report Type: 
  Country: None (occurrence: None)
  Receive Date: 20081023
  Receipt Date: 20081015
  Transmission Date: 20090506
  Serious: Yes (Other)
  Sender: FDA-Public Use
  Company Number: CHPA2008US17784

PATIENT
  Age: 86 Year
  Sex: Female

DRUGS (1)
  1. GAS-X EXTRA STRENGTH SOFTEGELS (NCH) (SIMETHICONE) SOFT GELATIN CAPSUL [Suspect]
     Indication: ABDOMINAL DISTENSION
     Dosage: 125 MG, QD, ORAL
     Route: 048

REACTIONS (3)
  - CARDIAC DISORDER [None]
  - CONSTIPATION [None]
  - THYROID DISORDER [None]
